FAERS Safety Report 9977975 (Version 1)
Quarter: 2014Q1

REPORT INFORMATION
  Report Type: Spontaneous
  Country: US (occurrence: US)
  Receive Date: 20140306
  Receipt Date: 20140306
  Transmission Date: 20141002
  Serious: Yes (Other)
  Sender: FDA-Public Use
  Company Number: US-JNJFOC-20140213319

PATIENT
  Age: 55 Year
  Sex: Male

DRUGS (2)
  1. BENADRYL ALLERGY DYE-FREE [Suspect]
     Indication: NASAL CONGESTION
     Route: 048
     Dates: start: 20140111
  2. BENADRYL ALLERGY DYE-FREE [Suspect]
     Indication: MULTIPLE ALLERGIES
     Route: 048
     Dates: start: 20140111

REACTIONS (5)
  - Jaundice [Not Recovered/Not Resolved]
  - Hepatic enzyme increased [Unknown]
  - Hepatic pain [Unknown]
  - Renal pain [Unknown]
  - Off label use [Unknown]
